FAERS Safety Report 5580526-8 (Version None)
Quarter: 2007Q4

REPORT INFORMATION
  Report Type: 
  Country: None (occurrence: None)
  Receive Date: 20071231
  Receipt Date: 20071231
  Transmission Date: 20080405
  Serious: Yes (Hospitalization)
  Sender: FDA-Public Use
  Company Number: None

PATIENT
  Sex: Male
  Weight: 18 kg

DRUGS (6)
  1. CYCLOPHOSPHAMIDE [Suspect]
     Dosage: 720 MG
     Dates: end: 20071126
  2. CYTARABINE [Suspect]
     Dosage: 432 MG
     Dates: end: 20071206
  3. MERCAPTOPURINE [Suspect]
     Dosage: 630 MG
     Dates: end: 20071209
  4. METHOTREXATE [Suspect]
     Dosage: 12 MG
     Dates: end: 20071209
  5. PEG-L- ASPARAGINASE (K-H) [Suspect]
     Dosage: 1800 MG
     Dates: end: 20071210
  6. VINCRISTINE SULFATE [Suspect]
     Dosage: 1.1 MG
     Dates: end: 20071210

REACTIONS (6)
  - CELLULITIS [None]
  - ENDOPHTHALMITIS [None]
  - EYE INFECTION [None]
  - NEUTROPENIA [None]
  - PSEUDOMONAS INFECTION [None]
  - SKIN LESION [None]
